APPROVED DRUG PRODUCT: MILRINONE LACTATE
Active Ingredient: MILRINONE LACTATE
Strength: EQ 1MG BASE/ML
Dosage Form/Route: INJECTABLE;INJECTION
Application: A076427 | Product #001
Applicant: BAXTER HEALTHCARE CORP
Approved: Sep 21, 2004 | RLD: No | RS: No | Type: DISCN